FAERS Safety Report 4288962-7 (Version None)
Quarter: 2004Q1

REPORT INFORMATION
  Report Type: 
  Country: None (occurrence: None)
  Receive Date: 20040205
  Receipt Date: 20030326
  Transmission Date: 20041129
  Serious: Yes (Hospitalization)
  Sender: FDA-Public Use
  Company Number: ETHYOL-02313

PATIENT
  Age: 49 Year
  Sex: Male
  Weight: 90.7194 kg

DRUGS (2)
  1. ETHYOL [Suspect]
     Dosage: 500 MG, 5 IN 1 WK, SUBCUTANEOUS
     Route: 058
     Dates: start: 20030217, end: 20030321
  2. ZOFRAN (ONDANESTRON HYDROCHLORIDE) [Concomitant]

REACTIONS (5)
  - HYPOTENSION [None]
  - MUCOSAL INFLAMMATION [None]
  - MYALGIA [None]
  - PYREXIA [None]
  - RASH [None]
